FAERS Safety Report 19709611 (Version 4)
Quarter: 2023Q2

REPORT INFORMATION
  Report Type: Spontaneous
  Country: US (occurrence: US)
  Receive Date: 20210817
  Receipt Date: 20230417
  Transmission Date: 20230722
  Serious: No
  Sender: FDA-Public Use
  Company Number: US-PFIZER INC-2020327361

PATIENT
  Age: 70 Year
  Sex: Female

DRUGS (1)
  1. PREMARIN [Suspect]
     Active Substance: ESTROGENS, CONJUGATED
     Dosage: 1 G, 2X/WEEK
     Route: 067

REACTIONS (3)
  - Product dispensing error [Unknown]
  - Off label use [Unknown]
  - Visual impairment [Unknown]

NARRATIVE: CASE EVENT DATE: 20210101
